FAERS Safety Report 5956366-4 (Version None)
Quarter: 2008Q4

REPORT INFORMATION
  Report Type: 
  Country: None (occurrence: None)
  Receive Date: 20081112
  Receipt Date: 20081030
  Transmission Date: 20090506
  Serious: Yes (Death)
  Sender: FDA-Public Use
  Company Number: 2008AL011502

PATIENT
  Sex: Female

DRUGS (1)
  1. DIGOXIN [Suspect]
     Indication: HEART RATE IRREGULAR
     Dosage: PO
     Route: 048
     Dates: start: 20010101

REACTIONS (5)
  - DIZZINESS [None]
  - INJURY [None]
  - LABILE BLOOD PRESSURE [None]
  - NAUSEA [None]
  - VOMITING [None]
